FAERS Safety Report 8219116-7 (Version None)
Quarter: 2012Q1

REPORT INFORMATION
  Report Type: 
  Country: None (occurrence: None)
  Receive Date: 20120319
  Receipt Date: 20120309
  Transmission Date: 20120608
  Serious: Yes (Other)
  Sender: FDA-Public Use
  Company Number: US-JNJFOC-20120210180

PATIENT
  Sex: Male
  Weight: 106.14 kg

DRUGS (7)
  1. CELEBREX [Concomitant]
     Indication: PROCEDURAL PAIN
     Dates: start: 20120206, end: 20120207
  2. SYMBICORT [Concomitant]
  3. XARELTO [Suspect]
     Indication: THROMBOSIS PROPHYLAXIS
     Route: 048
     Dates: start: 20120206, end: 20120207
  4. ZOLOFT [Concomitant]
  5. ENALAPRIL [Concomitant]
  6. COREG [Concomitant]
  7. XARELTO [Suspect]
     Indication: HIP ARTHROPLASTY
     Route: 048
     Dates: start: 20120206, end: 20120207

REACTIONS (1)
  - RENAL IMPAIRMENT [None]
